FAERS Safety Report 25975377 (Version 1)
Quarter: 2025Q4

REPORT INFORMATION
  Report Type: Spontaneous
  Country: US (occurrence: US)
  Receive Date: 20251029
  Receipt Date: 20251029
  Transmission Date: 20260118
  Serious: Yes (Other)
  Sender: HILL DERMACEUTICALS, INC.
  Company Number: US-Hill Dermaceuticals, Inc.-2187478

PATIENT
  Age: 53 Year
  Sex: Female

DRUGS (1)
  1. TOLAK [Suspect]
     Active Substance: FLUOROURACIL
     Indication: Precancerous condition

REACTIONS (2)
  - Erythema [Not Recovered/Not Resolved]
  - Pruritus [Recovered/Resolved]
